FAERS Safety Report 18717079 (Version 2)
Quarter: 2021Q1

REPORT INFORMATION
  Report Type: Spontaneous
  Country: DE (occurrence: DE)
  Receive Date: 20210108
  Receipt Date: 20210121
  Transmission Date: 20210419
  Serious: Yes (Death)
  Sender: FDA-Public Use
  Company Number: DE-EXELIXIS-CABO-21036468

PATIENT
  Age: 79 Year
  Sex: Male

DRUGS (11)
  1. VITAMIN B12 [Concomitant]
     Active Substance: CYANOCOBALAMIN
  2. TAVOR [Concomitant]
  3. VOTRIENT [Concomitant]
     Active Substance: PAZOPANIB HYDROCHLORIDE
  4. NOVALGIN [Concomitant]
  5. ASPIRIN. [Concomitant]
     Active Substance: ASPIRIN
  6. MCP [Concomitant]
     Active Substance: METOCLOPRAMIDE HYDROCHLORIDE
  7. HALDOL [Concomitant]
     Active Substance: HALOPERIDOL
  8. ISCADOR [Concomitant]
     Active Substance: VISCUM ALBUM FRUITING TOP
  9. TILIDINA [Concomitant]
     Active Substance: TILIDINE
  10. CABOMETYX [Suspect]
     Active Substance: CABOZANTINIB S-MALATE
     Indication: RENAL CANCER
     Dosage: 60 MG
     Dates: start: 20200409
  11. IRON [Concomitant]
     Active Substance: IRON

REACTIONS (2)
  - Malignant neoplasm progression [Fatal]
  - Drug intolerance [Unknown]
